FAERS Safety Report 7900768-3 (Version None)
Quarter: 2011Q4

REPORT INFORMATION
  Report Type: 
  Country: None (occurrence: None)
  Receive Date: 20111104
  Receipt Date: 20111024
  Transmission Date: 20120403
  Serious: Yes (Hospitalization, Other)
  Sender: FDA-Public Use
  Company Number: TPA2011A05397

PATIENT
  Age: 71 Year
  Sex: Male
  Weight: 133.3575 kg

DRUGS (17)
  1. HYDROCHLOROTHIAZIDE [Concomitant]
  2. DIOVAN [Concomitant]
  3. TOPROL-XL [Concomitant]
  4. ACTOS [Suspect]
     Indication: DIABETES MELLITUS INADEQUATE CONTROL
     Dosage: PER ORAL
     Route: 048
     Dates: start: 20050510, end: 20110901
  5. LOPID [Concomitant]
  6. PREVACID [Concomitant]
  7. PROSCAR [Concomitant]
  8. LORTAB [Concomitant]
  9. INSULIN [Concomitant]
  10. PRAVACHOL [Concomitant]
  11. ASPIRIN [Concomitant]
  12. NORVASC [Concomitant]
  13. FLEXERIL [Concomitant]
  14. DIGOXIN [Concomitant]
  15. ZOLOFT [Concomitant]
  16. ASACOL [Concomitant]
  17. ELAVIL [Concomitant]

REACTIONS (1)
  - BLADDER CANCER [None]
